FAERS Safety Report 6521417-5 (Version None)
Quarter: 2009Q4

REPORT INFORMATION
  Report Type: 
  Country: None (occurrence: None)
  Receive Date: 20091230
  Receipt Date: 20091215
  Transmission Date: 20100525
  Serious: Yes (Hospitalization, Other)
  Sender: FDA-Public Use
  Company Number: JP-PFIZER INC-2009172313

PATIENT
  Sex: Male
  Weight: 61 kg

DRUGS (8)
  1. SUNITINIB MALATE [Suspect]
     Indication: RENAL CELL CARCINOMA
     Dosage: 50 MG, 1X/DAY
     Route: 048
     Dates: start: 20090109
  2. HACHIAZULE [Concomitant]
     Dosage: UNK
     Route: 048
     Dates: start: 20090110
  3. CEFDINIR [Concomitant]
     Dosage: UNK
     Route: 048
     Dates: start: 20090117
  4. EMPYNASE P [Concomitant]
     Dosage: UNK
     Route: 048
     Dates: start: 20090117
  5. ASTOMIN [Concomitant]
     Dosage: UNK
     Route: 048
     Dates: start: 20090117
  6. MUCOSTA [Concomitant]
     Dosage: UNK
     Route: 048
     Dates: start: 20090117
  7. FLUMARIN [Concomitant]
     Dosage: UNK
     Route: 042
     Dates: start: 20090118
  8. STRONG NEO-MINOPHAGEN C [Concomitant]
     Route: 042

REACTIONS (1)
  - ERYTHEMA MULTIFORME [None]
